FAERS Safety Report 6367282-0 (Version None)
Quarter: 2009Q3

REPORT INFORMATION
  Report Type: 
  Country: None (occurrence: None)
  Receive Date: 20090821
  Receipt Date: 20090424
  Transmission Date: 20100115
  Serious: No
  Sender: FDA-Public Use
  Company Number: 8044561

PATIENT
  Age: 42 Year
  Sex: Female
  Weight: 68.1 kg

DRUGS (3)
  1. CIMZIA [Suspect]
     Indication: CROHN'S DISEASE
     Dosage: 400 MG SC
     Route: 058
     Dates: start: 20090323
  2. VICODIN [Concomitant]
  3. PREDNISONE [Concomitant]

REACTIONS (2)
  - DIARRHOEA [None]
  - FATIGUE [None]
